FAERS Safety Report 5066125-5 (Version None)
Quarter: 2006Q3

REPORT INFORMATION
  Report Type: 
  Country: None (occurrence: None)
  Receive Date: 20060725
  Receipt Date: 20060718
  Transmission Date: 20061208
  Serious: Yes (Other)
  Sender: FDA-Public Use
  Company Number: 200610618BFR

PATIENT
  Sex: Female

DRUGS (1)
  1. ASPIRIN TAB [Suspect]
     Dosage: ORAL
     Route: 048

REACTIONS (3)
  - APHASIA [None]
  - HEMIPLEGIA [None]
  - MEDICATION TAMPERING [None]
